FAERS Safety Report 6067121-1 (Version None)
Quarter: 2009Q1

REPORT INFORMATION
  Report Type: 
  Country: None (occurrence: None)
  Receive Date: 20090205
  Receipt Date: 20090203
  Transmission Date: 20090719
  Serious: Yes (Disabling, Other)
  Sender: FDA-Public Use
  Company Number: CL-ASTRAZENECA-2008UW07595

PATIENT
  Age: 40 Year
  Sex: Male

DRUGS (9)
  1. SEROQUEL [Suspect]
     Indication: BIPOLAR I DISORDER
     Route: 048
     Dates: start: 20080307, end: 20080311
  2. SEROQUEL [Suspect]
     Indication: INSOMNIA
     Route: 048
     Dates: start: 20080307, end: 20080311
  3. LITHIUM CARBONATE [Concomitant]
     Indication: BIPOLAR DISORDER
     Dates: start: 20070501
  4. LAMOTRIGINE [Concomitant]
     Indication: BIPOLAR DISORDER
     Dates: start: 20070501
  5. LORAZEPAM [Concomitant]
     Indication: ANXIETY
     Dates: start: 20070501
  6. SINOGAN [Concomitant]
     Dates: start: 20070501, end: 20070701
  7. OLANZAPINE [Concomitant]
     Indication: ANXIETY
     Dates: start: 20070501, end: 20070701
  8. QUETIDIN [Concomitant]
     Dates: start: 20070501, end: 20070101
  9. QUETIDIN [Concomitant]
     Dates: start: 20070701

REACTIONS (4)
  - ERECTILE DYSFUNCTION [None]
  - HYPOMANIA [None]
  - PEYRONIE'S DISEASE [None]
  - PRIAPISM [None]
